FAERS Safety Report 4994966-9 (Version None)
Quarter: 2006Q2

REPORT INFORMATION
  Report Type: 
  Country: None (occurrence: None)
  Receive Date: 20060501
  Receipt Date: 20060417
  Transmission Date: 20061013
  Serious: Yes (Other)
  Sender: FDA-Public Use
  Company Number: 2006BH000905

PATIENT
  Age: 16 Year
  Sex: Male
  Weight: 70 kg

DRUGS (4)
  1. FEIBA VH IMMUNO [Suspect]
     Indication: HAEMOPHILIA B WITH ANTI FACTOR IX
     Dosage: 3000 IU; ONCE; IV; SEE IMAGE
     Route: 042
     Dates: start: 20060114, end: 20060114
  2. FEIBA VH IMMUNO [Suspect]
     Indication: HAEMOPHILIA B WITH ANTI FACTOR IX
     Dosage: 3000 IU; ONCE; IV; SEE IMAGE
     Route: 042
     Dates: start: 20060116, end: 20060116
  3. FEIBA VH IMMUNO [Suspect]
     Indication: HAEMOPHILIA B WITH ANTI FACTOR IX
     Dosage: 3000 IU; ONCE; IV; SEE IMAGE
     Route: 042
     Dates: start: 20060117, end: 20060117
  4. PIRITON [Concomitant]

REACTIONS (6)
  - FEELING ABNORMAL [None]
  - HYPERSENSITIVITY [None]
  - INCORRECT DRUG ADMINISTRATION RATE [None]
  - INFUSION RELATED REACTION [None]
  - TACHYCARDIA [None]
  - THROAT TIGHTNESS [None]
